FAERS Safety Report 16439695 (Version 1)
Quarter: 2019Q3

REPORT INFORMATION
  Report Type: Spontaneous
  Country: US (occurrence: US)
  Receive Date: 20190617
  Receipt Date: 20190617
  Transmission Date: 20191004
  Serious: Yes (Disabling)
  Sender: FDA-Public Use
  Company Number: None

PATIENT
  Age: 40 Year
  Sex: Female
  Weight: 67.5 kg

DRUGS (2)
  1. PREDNISONE. [Suspect]
     Active Substance: PREDNISONE
     Indication: BRONCHITIS
     Dosage: ?          QUANTITY:1 TABLET(S);?
     Route: 048
     Dates: start: 20190105
  2. PREDNISONE. [Suspect]
     Active Substance: PREDNISONE
     Indication: ASTHMA
     Dosage: ?          QUANTITY:1 TABLET(S);?
     Route: 048
     Dates: start: 20190105

REACTIONS (27)
  - Headache [None]
  - Weight increased [None]
  - Dry skin [None]
  - Palpitations [None]
  - Abdominal pain upper [None]
  - Eye pain [None]
  - Pollakiuria [None]
  - Agitation [None]
  - Mood altered [None]
  - Breath sounds abnormal [None]
  - Hypoaesthesia [None]
  - Hyperhidrosis [None]
  - Insomnia [None]
  - Aggression [None]
  - Nausea [None]
  - Vision blurred [None]
  - Dizziness [None]
  - Dyspnoea [None]
  - Peripheral swelling [None]
  - Flushing [None]
  - Heart rate increased [None]
  - Irritability [None]
  - Mental impairment [None]
  - Libido decreased [None]
  - Dysuria [None]
  - Dysphonia [None]
  - Increased appetite [None]

NARRATIVE: CASE EVENT DATE: 20190108
